FAERS Safety Report 23064450 (Version 1)
Quarter: 2023Q4

REPORT INFORMATION
  Report Type: Spontaneous
  Country: US (occurrence: None)
  Receive Date: 20231013
  Receipt Date: 20231013
  Transmission Date: 20240110
  Serious: Yes (Life-Threatening, Hospitalization)
  Sender: FDA-Public Use
  Company Number: None

PATIENT
  Age: 59 Year
  Sex: Male
  Weight: 87 kg

DRUGS (1)
  1. GABAPENTIN [Suspect]
     Active Substance: GABAPENTIN
     Dosage: FREQUENCY : TWICE A DAY;?
     Route: 048
     Dates: start: 20230103, end: 20230117

REACTIONS (6)
  - Anxiety [None]
  - Depression [None]
  - Suicidal ideation [None]
  - Crying [None]
  - Emotional distress [None]
  - Therapy cessation [None]

NARRATIVE: CASE EVENT DATE: 20230117
